FAERS Safety Report 6679807-6 (Version None)
Quarter: 2010Q2

REPORT INFORMATION
  Report Type: 
  Country: None (occurrence: None)
  Receive Date: 20100413
  Receipt Date: 20090219
  Transmission Date: 20101027
  Serious: No
  Sender: FDA-Public Use
  Company Number: US-ASTRAZENECA-2007UW25335

PATIENT
  Age: 70 Year
  Sex: Female
  Weight: 64.4 kg

DRUGS (10)
  1. TENORMIN [Suspect]
     Route: 048
  2. TOPROL-XL [Suspect]
     Route: 048
  3. XANAX [Concomitant]
  4. CALCIUM [Concomitant]
  5. VITAMIN E [Concomitant]
  6. FLAXSEED OIL [Concomitant]
  7. PROTONIX [Concomitant]
  8. AMBIEN [Concomitant]
  9. HYDRALAZINE HCL [Concomitant]
  10. LISINOPRIL [Concomitant]

REACTIONS (4)
  - DRUG INEFFECTIVE [None]
  - LUNG DISORDER [None]
  - ORAL DISORDER [None]
  - TONGUE DISORDER [None]
